FAERS Safety Report 4603160-2 (Version None)
Quarter: 2005Q1

REPORT INFORMATION
  Report Type: 
  Country: None (occurrence: None)
  Receive Date: 20050308
  Receipt Date: 20050318
  Transmission Date: 20050727
  Serious: Yes (Other)
  Sender: FDA-Public Use
  Company Number: 6000002-2005-00148

PATIENT
  Sex: Female

DRUGS (1)
  1. RIMSO-50 [Suspect]
     Dosage: ACCIDENTAL INHALATION
     Route: 055
     Dates: start: 20050202

REACTIONS (2)
  - ACCIDENTAL EXPOSURE [None]
  - NAUSEA [None]
